FAERS Safety Report 18353859 (Version 2)
Quarter: 2023Q2

REPORT INFORMATION
  Report Type: Other
  Country: JP (occurrence: JP)
  Receive Date: 20201006
  Receipt Date: 20230418
  Transmission Date: 20230722
  Serious: Yes (Hospitalization)
  Sender: FDA-Public Use
  Company Number: JP-CHUGAI-A2020043573ROCHE

PATIENT
  Age: 13 Year
  Sex: Male
  Weight: 65 kg

DRUGS (14)
  1. CELLCEPT [Suspect]
     Active Substance: MYCOPHENOLATE MOFETIL
     Indication: Nephrotic syndrome
     Route: 048
     Dates: start: 201506
  2. RITUXAN [Suspect]
     Active Substance: RITUXIMAB
     Indication: Nephrotic syndrome
     Dosage: (APPROXIMATELY 290 MG/M2)
     Route: 041
     Dates: start: 20200708, end: 20200708
  3. RITUXAN [Suspect]
     Active Substance: RITUXIMAB
     Route: 042
     Dates: start: 201503
  4. SOLU-MEDROL [Concomitant]
     Active Substance: METHYLPREDNISOLONE SODIUM SUCCINATE
     Indication: Prophylaxis
     Route: 042
     Dates: start: 20200708, end: 20200708
  5. CALONAL [Concomitant]
     Active Substance: ACETAMINOPHEN
     Indication: Prophylaxis
     Route: 048
     Dates: start: 20200708, end: 20200708
  6. OLOPATADINE HYDROCHLORIDE OD [Concomitant]
     Indication: Prophylaxis
     Route: 048
     Dates: start: 20200708, end: 20200708
  7. NEORAL [Concomitant]
     Active Substance: CYCLOSPORINE
     Indication: Nephrotic syndrome
     Route: 048
     Dates: start: 200802
  8. PREDNISOLONE [Concomitant]
     Active Substance: PREDNISOLONE
     Indication: Nephrotic syndrome
     Route: 048
     Dates: start: 200801
  9. ALFACALCIDOL [Concomitant]
     Active Substance: ALFACALCIDOL
     Indication: Prophylaxis
     Route: 048
     Dates: start: 201504
  10. BEPOTASTINE BESYLATE [Concomitant]
     Active Substance: BEPOTASTINE BESYLATE
     Indication: Urticaria
     Route: 048
  11. METHYLPREDNISOLONE SODIUM SUCCINATE [Concomitant]
     Active Substance: METHYLPREDNISOLONE SODIUM SUCCINATE
     Indication: Nephrotic syndrome
  12. HYDROXYZINE HYDROCHLORIDE [Concomitant]
     Active Substance: HYDROXYZINE HYDROCHLORIDE
     Indication: Nephrotic syndrome
  13. ACETAMINOPHEN [Concomitant]
     Active Substance: ACETAMINOPHEN
     Indication: Nephrotic syndrome
  14. CYCLOSPORINE [Concomitant]
     Active Substance: CYCLOSPORINE
     Indication: Nephrotic syndrome

REACTIONS (2)
  - Off label use [Unknown]
  - Serum sickness [Recovered/Resolved]

NARRATIVE: CASE EVENT DATE: 20200717
